FAERS Safety Report 9751143 (Version 1)
Quarter: 2013Q4

REPORT INFORMATION
  Report Type: Spontaneous
  Country: SG (occurrence: SG)
  Receive Date: 20131212
  Receipt Date: 20131212
  Transmission Date: 20140711
  Serious: Yes (Hospitalization, Other)
  Sender: FDA-Public Use
  Company Number: SG-ABBVIE-13P-141-1178761-00

PATIENT
  Age: 62 Year
  Sex: Male

DRUGS (1)
  1. KLACID [Suspect]
     Indication: PRODUCT USED FOR UNKNOWN INDICATION
     Route: 065

REACTIONS (3)
  - Sepsis [Recovered/Resolved]
  - Electrocardiogram QT prolonged [Recovered/Resolved]
  - Myocardial infarction [Recovered/Resolved]
